FAERS Safety Report 11802559 (Version 1)
Quarter: 2015Q4

REPORT INFORMATION
  Report Type: Spontaneous
  Country: CA (occurrence: CA)
  Receive Date: 20151204
  Receipt Date: 20151204
  Transmission Date: 20160305
  Serious: Yes (Other)
  Sender: FDA-Public Use
  Company Number: CA-BAYER-199907979GDS

PATIENT
  Age: 52 Year
  Sex: Female

DRUGS (2)
  1. PHENAZOPYRIDINE HYDROCHLORIDE. [Concomitant]
     Active Substance: PHENAZOPYRIDINE HYDROCHLORIDE
  2. CIPRO [Suspect]
     Active Substance: CIPROFLOXACIN HYDROCHLORIDE
     Indication: CYSTITIS
     Dosage: 1000 MG (DAILY DOSE), , ORAL
     Route: 048
     Dates: start: 199903, end: 1999

REACTIONS (1)
  - Retinal detachment [Unknown]
